FAERS Safety Report 18785579 (Version 1)
Quarter: 2021Q1

REPORT INFORMATION
  Report Type: Spontaneous
  Country: US (occurrence: US)
  Receive Date: 20210125
  Receipt Date: 20210125
  Transmission Date: 20210419
  Serious: No
  Sender: FDA-Public Use
  Company Number: US-ROCHE-2565685

PATIENT
  Sex: Female

DRUGS (7)
  1. SYNVISC [Concomitant]
     Active Substance: HYLAN G-F 20
     Dosage: 1 INJECTION 8MG/ML
  2. RITUXAN [Suspect]
     Active Substance: RITUXIMAB
     Indication: RHEUMATOID ARTHRITIS
     Dosage: INFUSE 1000 MG IV ON D1 +D 15 EVERY 6 MONTHS
     Route: 042
     Dates: start: 20160718
  3. NITROFURANTOIN MACROCRYSTALS [Concomitant]
     Active Substance: NITROFURANTOIN
  4. FENTANYL. [Concomitant]
     Active Substance: FENTANYL
     Dosage: 25 MCG/HR
  5. TIZANIDINE. [Concomitant]
     Active Substance: TIZANIDINE
  6. GABAPENTIN. [Concomitant]
     Active Substance: GABAPENTIN
  7. MORPHINE SULFATE. [Concomitant]
     Active Substance: MORPHINE SULFATE

REACTIONS (1)
  - Illness [Unknown]
